FAERS Safety Report 17847312 (Version 1)
Quarter: 2020Q2

REPORT INFORMATION
  Report Type: Spontaneous
  Country: US (occurrence: US)
  Receive Date: 20200601
  Receipt Date: 20200601
  Transmission Date: 20200714
  Serious: Yes (Hospitalization)
  Sender: FDA-Public Use
  Company Number: US-SUN PHARMACEUTICAL INDUSTRIES LTD-2019R1-206317

PATIENT
  Age: 29 Year
  Sex: Male

DRUGS (1)
  1. NAPROXEN. [Suspect]
     Active Substance: NAPROXEN
     Indication: PRODUCT USED FOR UNKNOWN INDICATION
     Dosage: 500 MG EVERY 4 HOURS OR 3000 MG PER DAY FOR AT LEAST 2 DAYS
     Route: 065

REACTIONS (3)
  - Lumbar radiculopathy [Recovered/Resolved]
  - Overdose [Unknown]
  - Spinal epidural haematoma [Recovered/Resolved]
